FAERS Safety Report 15573122 (Version 1)
Quarter: 2018Q4

REPORT INFORMATION
  Report Type: Spontaneous
  Country: US (occurrence: US)
  Receive Date: 20181101
  Receipt Date: 20181101
  Transmission Date: 20190205
  Serious: No
  Sender: FDA-Public Use
  Company Number: US-SA-2018SA298651

PATIENT
  Sex: Female

DRUGS (1)
  1. BENZODENT [Suspect]
     Active Substance: BENZOCAINE
     Dosage: UNK

REACTIONS (1)
  - Laryngitis [Unknown]
